FAERS Safety Report 24706089 (Version 2)
Quarter: 2024Q4

REPORT INFORMATION
  Report Type: Report from Study
  Country: US (occurrence: US)
  Receive Date: 20241206
  Receipt Date: 20241220
  Transmission Date: 20250115
  Serious: Yes (Hospitalization, Disabling, Other)
  Sender: RECORDATI
  Company Number: US-RECORDATI RARE DISEASE INC.-2024009505

PATIENT

DRUGS (16)
  1. ISTURISA [Suspect]
     Active Substance: OSILODROSTAT PHOSPHATE
     Indication: Pituitary-dependent Cushing^s syndrome
     Dosage: 1 MILLIGRAM, BID (1 MG TABLET)
     Route: 048
     Dates: end: 20241028
  2. ISTURISA [Suspect]
     Active Substance: OSILODROSTAT PHOSPHATE
     Dosage: 2 MILLIGRAM, BID (1 MG TABLET)
     Route: 048
     Dates: start: 20241029, end: 20241119
  3. ISTURISA [Suspect]
     Active Substance: OSILODROSTAT PHOSPHATE
     Dosage: 5 MILLIGRAM, BID (5 MG TABLET)
     Route: 048
     Dates: start: 202411, end: 20241126
  4. ISTURISA [Suspect]
     Active Substance: OSILODROSTAT PHOSPHATE
     Dosage: 2 MILLIGRAM, BID
     Route: 048
     Dates: start: 202411, end: 202411
  5. AMLODIPINE BESYLATE [Concomitant]
     Active Substance: AMLODIPINE BESYLATE
     Indication: Product used for unknown indication
     Dosage: 10 MILLIGRAM, QD (10 MG TABLET)
     Route: 048
     Dates: start: 20240102
  6. CRESTOR [Concomitant]
     Active Substance: ROSUVASTATIN CALCIUM
     Indication: Product used for unknown indication
     Dosage: 10 MILLIGRAM, QD (10 MG TABLET)
     Route: 048
     Dates: start: 20240102
  7. DULOXETINE HYDROCHLORIDE [Concomitant]
     Active Substance: DULOXETINE HYDROCHLORIDE
     Indication: Product used for unknown indication
     Dosage: 30 MILLIGRAM, QD (CAPSULE DELAYED RELEASE)
     Route: 048
     Dates: start: 20160901
  8. EPIPEN [Concomitant]
     Active Substance: EPINEPHRINE
     Indication: Product used for unknown indication
     Dosage: 0.3 MG/0.3ML, PRN (AS NEEDED IJ)
     Dates: start: 20180901
  9. HYDRALAZINE HCL [Concomitant]
     Active Substance: HYDRALAZINE HYDROCHLORIDE
     Indication: Product used for unknown indication
     Dosage: 10 MILLIGRAM, PRN (AS NEEDED)
     Route: 048
     Dates: start: 20180901
  10. KETOCONAZOLE [Concomitant]
     Active Substance: KETOCONAZOLE
     Indication: Product used for unknown indication
     Dosage: 200 MILLIGRAM, QD (200 MG TABLET)
     Route: 048
     Dates: start: 20240826, end: 20241101
  11. MELATONIN [Concomitant]
     Active Substance: MELATONIN
     Indication: Product used for unknown indication
     Dosage: 9 MILLIGRAM, PRN (3MG TABLET AS NEEDED)
     Route: 048
     Dates: start: 20240102
  12. PLAQUENIL [Concomitant]
     Active Substance: HYDROXYCHLOROQUINE SULFATE
     Indication: Product used for unknown indication
     Dosage: 200 MILLIGRAM, BID (200 MG TABLET)
     Route: 048
     Dates: start: 20240102
  13. POTASSIUM CHLORIDE [Concomitant]
     Active Substance: POTASSIUM CHLORIDE
     Indication: Product used for unknown indication
     Dosage: 20 MILLIEQUIVALENT, QD (EXTENTEND RELEASE TABLET)
     Route: 048
     Dates: start: 20240102, end: 20241119
  14. SPIRONOLACTONE [Concomitant]
     Active Substance: SPIRONOLACTONE
     Indication: Product used for unknown indication
     Dosage: 100 MILLIGRAM, QD (100 MILLIGRAM)
     Route: 048
     Dates: start: 20240102
  15. SULFAMETHOXAZOLE AND TRIMETHOPRIM [Concomitant]
     Active Substance: SULFAMETHOXAZOLE\TRIMETHOPRIM
     Indication: Product used for unknown indication
     Dosage: 400-80 MG, THREE TIMES A WEEK
     Route: 048
     Dates: start: 20240102
  16. TYLENOL [Concomitant]
     Active Substance: ACETAMINOPHEN
     Indication: Product used for unknown indication
     Dosage: 325 MILLIGRAM, PRN (325 MG TABLET AS NEEDED)
     Route: 048
     Dates: start: 20240102

REACTIONS (6)
  - Gait inability [Recovering/Resolving]
  - Transient ischaemic attack [Recovering/Resolving]
  - General physical health deterioration [Recovering/Resolving]
  - Nausea [Not Recovered/Not Resolved]
  - Vomiting [Not Recovered/Not Resolved]
  - Diarrhoea [Not Recovered/Not Resolved]

NARRATIVE: CASE EVENT DATE: 20241101
